FAERS Safety Report 5938549-2 (Version None)
Quarter: 2008Q4

REPORT INFORMATION
  Report Type: 
  Country: None (occurrence: None)
  Receive Date: 20081103
  Receipt Date: 20081027
  Transmission Date: 20090506
  Serious: No
  Sender: FDA-Public Use
  Company Number: PHEH2008US09476

PATIENT
  Sex: Male
  Weight: 57.143 kg

DRUGS (10)
  1. EXJADE [Suspect]
     Indication: MYELODYSPLASTIC SYNDROME
     Dosage: 1 TAB WITH JUICE QD
     Route: 048
     Dates: end: 20080929
  2. EXJADE [Suspect]
     Indication: IRON OVERLOAD
  3. EXJADE [Suspect]
     Indication: REFRACTORY ANAEMIA
  4. BLOOD TRANSFUSION, AUXILIARY PRODUCTS [Suspect]
     Indication: REFRACTORY ANAEMIA
     Dosage: UNK
     Dates: start: 20080901
  5. ARANESP [Suspect]
     Indication: RENAL FAILURE CHRONIC
     Dosage: 300 UG, UNK
     Route: 058
  6. ARANESP [Suspect]
     Dosage: 300 MCG EVERY 3 WEEKS
     Dates: start: 20080701
  7. PROCRIT [Suspect]
     Indication: RENAL FAILURE CHRONIC
     Dosage: DOSE SCALATIONS UP TO 60000 IU 1 IN 1WEEKS
     Route: 058
     Dates: end: 20080701
  8. ERGOCALCIFEROL [Concomitant]
  9. VITAMIN D [Concomitant]
     Dosage: 50000 IU, UNK
     Route: 048
  10. TYLENOL (CAPLET) [Concomitant]
     Route: 048

REACTIONS (2)
  - HAEMOGLOBIN DECREASED [None]
  - RASH [None]
